FAERS Safety Report 14562841 (Version 1)
Quarter: 2018Q1

REPORT INFORMATION
  Report Type: Spontaneous
  Country: JP (occurrence: JP)
  Receive Date: 20180222
  Receipt Date: 20180222
  Transmission Date: 20180509
  Serious: Yes (Hospitalization, Other)
  Sender: FDA-Public Use
  Company Number: JP-PFIZER INC-2017445601

PATIENT
  Age: 61 Year
  Sex: Male
  Weight: 83 kg

DRUGS (13)
  1. CAMPTO [Suspect]
     Active Substance: IRINOTECAN
     Indication: COLON CANCER
     Dosage: 280 MG, 1X/DAY (MG/BODY) (141.5 MG/M2)
     Route: 041
     Dates: start: 20170817, end: 20170817
  2. CAMPTO [Suspect]
     Active Substance: IRINOTECAN
     Dosage: 200 MG, 1X/DAY (MG/BODY (101.1 MG/M2))
     Route: 041
     Dates: start: 20170921, end: 20170921
  3. 5-FU [Suspect]
     Active Substance: FLUOROURACIL
     Dosage: 4000 MG, UNK (ONCE IN 2 DAYS)
     Route: 041
     Dates: start: 20170921, end: 20170921
  4. CAMPTO [Suspect]
     Active Substance: IRINOTECAN
     Dosage: 240 MG, 1X/DAY (MG/BODY) (121.3 MG/M2)
     Route: 041
     Dates: start: 20170907, end: 20170907
  5. LEVOFOLINATE [Suspect]
     Active Substance: LEVOLEUCOVORIN CALCIUM
     Dosage: 375 MG, 1X/DAY
     Route: 041
     Dates: start: 20170907, end: 20170907
  6. GRANISETRON [Concomitant]
     Active Substance: GRANISETRON
     Dosage: UNK
     Dates: start: 20170817, end: 20170921
  7. DEXART [Concomitant]
     Active Substance: DEXAMETHASONE SODIUM PHOSPHATE
     Dosage: UNK
     Dates: start: 20170817, end: 20170921
  8. 5-FU [Suspect]
     Active Substance: FLUOROURACIL
     Indication: COLON CANCER
     Dosage: 4500 MG, UNK (ONCE IN 2 DAYS) (MG/BODY/D1-2) (2273.9 MG/M2/D1-2))
     Route: 041
     Dates: start: 20170817, end: 20170817
  9. 5-FU [Suspect]
     Active Substance: FLUOROURACIL
     Dosage: 4000 MG, UNK (MG/BODY/D1-2 (2021.2 MG/M2/D1-2))
     Route: 041
     Dates: start: 20170907, end: 20170907
  10. ZALTRAP [Concomitant]
     Active Substance: ZIV-AFLIBERCEPT
     Dosage: 300 MG, UNK (MG/BODY)
     Dates: start: 20170817, end: 20170921
  11. LEVOFOLINATE [Suspect]
     Active Substance: LEVOLEUCOVORIN CALCIUM
     Indication: COLON CANCER
     Dosage: 375 MG, 1X/DAY (MG/BODY)(189.5 MG/M2)
     Route: 041
     Dates: start: 20170817, end: 20170817
  12. LEVOFOLINATE [Suspect]
     Active Substance: LEVOLEUCOVORIN CALCIUM
     Dosage: 375 MG, 1X/DAY
     Route: 041
     Dates: start: 20170921, end: 20170921
  13. EMEND [Concomitant]
     Active Substance: APREPITANT
     Dosage: UNK
     Dates: start: 20170817, end: 20170923

REACTIONS (7)
  - Blood urea increased [Unknown]
  - Decreased appetite [Unknown]
  - Bacteraemia [Recovering/Resolving]
  - Diarrhoea [Recovered/Resolved]
  - Malaise [Recovered/Resolved]
  - Haemoglobin decreased [Unknown]
  - Dyspnoea [Recovered/Resolved]

NARRATIVE: CASE EVENT DATE: 20171005
